FAERS Safety Report 5581074-1 (Version None)
Quarter: 2007Q4

REPORT INFORMATION
  Report Type: 
  Country: None (occurrence: None)
  Receive Date: 20071227
  Receipt Date: 20071218
  Transmission Date: 20080405
  Serious: Yes (Hospitalization)
  Sender: FDA-Public Use
  Company Number: 2007SP025099

PATIENT
  Age: 34 Year
  Sex: Male
  Weight: 61.2356 kg

DRUGS (12)
  1. PEG-INTRON [Suspect]
     Indication: HEREDITARY HAEMORRHAGIC TELANGIECTASIA
     Dosage: 64 MCG;QW;SC
     Route: 058
     Dates: start: 20071008
  2. AMOXICILLIN [Concomitant]
  3. TEGRETOL [Concomitant]
  4. HYDROCHLOROTHIAZIDE [Concomitant]
  5. LEVOTHYROXINE SODIUM [Concomitant]
  6. FOLIC ACID [Concomitant]
  7. PHENOBARBITAL TAB [Concomitant]
  8. ACETAMINOPHEN [Concomitant]
  9. FEXOFENADINE [Concomitant]
  10. AMBIEN [Concomitant]
  11. DIPHENHYDRAMINE HCL [Concomitant]
  12. PHENYLEPHRINE [Concomitant]

REACTIONS (5)
  - CHEST PAIN [None]
  - COUGH [None]
  - FATIGUE [None]
  - PLEURITIC PAIN [None]
  - UPPER RESPIRATORY TRACT INFECTION [None]
